FAERS Safety Report 7671442-6 (Version None)
Quarter: 2011Q3

REPORT INFORMATION
  Report Type: 
  Country: None (occurrence: None)
  Receive Date: 20110809
  Receipt Date: 20110324
  Transmission Date: 20111222
  Serious: Yes (Other)
  Sender: FDA-Public Use
  Company Number: US-BAYER-201034585NA

PATIENT
  Age: 19 Year
  Sex: Female
  Weight: 70.295 kg

DRUGS (2)
  1. DROSPIRENONE AND ETHINYL ESTRADIOL [Suspect]
     Indication: PRODUCT USED FOR UNKNOWN INDICATION
     Dosage: UNK
     Dates: start: 20080801
  2. YASMIN [Suspect]
     Indication: MENORRHAGIA
     Dosage: UNK
     Route: 048
     Dates: start: 20060114, end: 20080821

REACTIONS (10)
  - NAUSEA [None]
  - BILIARY COLIC [None]
  - EPIGASTRIC DISCOMFORT [None]
  - CHOLELITHIASIS [None]
  - ABDOMINAL PAIN UPPER [None]
  - ABDOMINAL PAIN [None]
  - SPHINCTER OF ODDI DYSFUNCTION [None]
  - IMPAIRED GASTRIC EMPTYING [None]
  - CHEST PAIN [None]
  - VOMITING [None]
